FAERS Safety Report 6905928-6 (Version None)
Quarter: 2010Q3

REPORT INFORMATION
  Report Type: 
  Country: None (occurrence: None)
  Receive Date: 20100804
  Receipt Date: 20100615
  Transmission Date: 20110219
  Serious: Yes (Other)
  Sender: FDA-Public Use
  Company Number: NL-ROCHE-718742

PATIENT

DRUGS (3)
  1. AVASTIN [Suspect]
     Indication: PRODUCT USED FOR UNKNOWN INDICATION
     Dosage: TREATED FOR ONE AND A HALF YEAR AND THEN DISCONTINUED.
     Route: 042
  2. AVASTIN [Suspect]
     Dosage: RESTARTED
     Route: 042
  3. XELOX [Concomitant]
     Indication: PRODUCT USED FOR UNKNOWN INDICATION
     Dosage: RESTARTED
     Route: 065

REACTIONS (1)
  - DISEASE PROGRESSION [None]
